FAERS Safety Report 24816475 (Version 3)
Quarter: 2025Q1

REPORT INFORMATION
  Report Type: Spontaneous
  Country: US (occurrence: US)
  Receive Date: 20250107
  Receipt Date: 20250130
  Transmission Date: 20250409
  Serious: Yes (Hospitalization, Other)
  Sender: RIGEL PHARMACEUTICALS
  Company Number: US-BLUEPRINT MEDICINES CORPORATION-2024BUS004832

PATIENT
  Age: 54 Year
  Sex: Male

DRUGS (7)
  1. GAVRETO [Suspect]
     Active Substance: PRALSETINIB
     Indication: Non-small cell lung cancer
     Dosage: 400 MILLIGRAM, QD
     Route: 065
     Dates: start: 202305, end: 202308
  2. GAVRETO [Suspect]
     Active Substance: PRALSETINIB
     Route: 065
  3. GAVRETO [Suspect]
     Active Substance: PRALSETINIB
     Route: 065
  4. GAVRETO [Suspect]
     Active Substance: PRALSETINIB
     Route: 065
  5. GAVRETO [Suspect]
     Active Substance: PRALSETINIB
     Route: 065
     Dates: start: 202310
  6. VALGANCICLOVIR [Suspect]
     Active Substance: VALGANCICLOVIR
     Indication: Cytomegalovirus viraemia
     Dosage: 900 MILLIGRAM, BID
  7. AMLODIPINE [Concomitant]
     Active Substance: AMLODIPINE BESYLATE
     Indication: Hypertension
     Route: 065

REACTIONS (12)
  - Cytomegalovirus viraemia [Recovering/Resolving]
  - Hepatitis B reactivation [Recovering/Resolving]
  - Weight decreased [Recovering/Resolving]
  - Chills [Recovered/Resolved]
  - Fatigue [Not Recovered/Not Resolved]
  - Asthenia [Unknown]
  - Blood creatine phosphokinase increased [Recovering/Resolving]
  - Haemoglobin decreased [Recovering/Resolving]
  - Platelet count decreased [Recovering/Resolving]
  - Taste disorder [Unknown]
  - Myalgia [Not Recovered/Not Resolved]
  - Off label use [Unknown]
